FAERS Safety Report 8507676-8 (Version None)
Quarter: 2012Q3

REPORT INFORMATION
  Report Type: 
  Country: None (occurrence: None)
  Receive Date: 20120713
  Receipt Date: 20120209
  Transmission Date: 20120928
  Serious: Yes (Other)
  Sender: FDA-Public Use
  Company Number: GB-RANBAXY-2012RR-52686

PATIENT
  Age: 20 Month
  Sex: Male

DRUGS (10)
  1. TACROLIMUS [Suspect]
     Indication: RENAL TRANSPLANT
     Dosage: 0.2 MG/KG/DAY, BID
     Route: 065
  2. TACROLIMUS [Suspect]
     Dosage: 0.08 MG/KG, IN THE MORNING
  3. FLUCONAZOLE [Interacting]
     Dosage: 3 MG/KG, UNK
     Route: 042
  4. CAPSOFUNGIN [Concomitant]
     Indication: SEPTIC SHOCK
     Dosage: UNK
     Route: 065
  5. TACROLIMUS [Suspect]
     Dosage: 0.12 MG/KG, AT NIGHT
     Route: 065
  6. TACROLIMUS [Suspect]
     Dosage: 0.08 MG/KG, BID
  7. FLUCONAZOLE [Interacting]
     Dosage: 3 MG/KG, UNK
     Route: 042
  8. FLUCONAZOLE [Interacting]
     Dosage: 6 MG/KG, UNK
     Route: 033
  9. FLUCONAZOLE [Interacting]
     Dosage: 6 MG/KG, UNK
     Route: 042
  10. FLUCONAZOLE [Interacting]
     Indication: FUNGAL PERITONITIS
     Dosage: 3 MG/KG, UNK
     Route: 048

REACTIONS (5)
  - FUNGAL PERITONITIS [None]
  - DRUG INTERACTION [None]
  - DEPRESSED LEVEL OF CONSCIOUSNESS [None]
  - SEPTIC SHOCK [None]
  - COMPLICATIONS OF TRANSPLANTED KIDNEY [None]
